FAERS Safety Report 7472557-8 (Version None)
Quarter: 2011Q2

REPORT INFORMATION
  Report Type: 
  Country: None (occurrence: None)
  Receive Date: 20110511
  Receipt Date: 20110427
  Transmission Date: 20111010
  Serious: No
  Sender: FDA-Public Use
  Company Number: US-B.I. PHARMACEUTICALS,INC./RIDGEFIELD-2011-BP-11977BP

PATIENT
  Sex: Male

DRUGS (3)
  1. FISH OIL [Concomitant]
  2. FLAX SEEDS [Concomitant]
  3. PRADAXA [Suspect]
     Dosage: 300 MG

REACTIONS (1)
  - COAGULATION TEST ABNORMAL [None]
